FAERS Safety Report 7803992-3 (Version None)
Quarter: 2011Q4

REPORT INFORMATION
  Report Type: 
  Country: None (occurrence: None)
  Receive Date: 20111010
  Receipt Date: 20110930
  Transmission Date: 20120403
  Serious: No
  Sender: FDA-Public Use
  Company Number: US-JNJFOC-20111000771

PATIENT
  Age: 20 Year
  Sex: Male

DRUGS (1)
  1. FENTANYL [Suspect]
     Indication: HEPATITIS B
     Route: 062

REACTIONS (5)
  - FEELING ABNORMAL [None]
  - NERVOUSNESS [None]
  - AGITATION [None]
  - TREATMENT NONCOMPLIANCE [None]
  - WRONG TECHNIQUE IN DRUG USAGE PROCESS [None]
